FAERS Safety Report 8988363 (Version 1)
Quarter: 2012Q4

REPORT INFORMATION
  Report Type: Spontaneous
  Country: US (occurrence: None)
  Receive Date: 20121220
  Receipt Date: 20121220
  Transmission Date: 20130627
  Serious: Yes (Hospitalization)
  Sender: FDA-Public Use
  Company Number: None

PATIENT
  Age: 34 Year
  Sex: Female
  Weight: 73.03 kg

DRUGS (3)
  1. VYVANSE [Suspect]
     Indication: ADHD
     Dates: start: 20110905, end: 20121210
  2. ZOLOFT [Suspect]
     Indication: ANXIETY
     Dates: start: 20110910, end: 20121210
  3. ZOLOFT [Suspect]
     Indication: DEPRESSION
     Dates: start: 20110910, end: 20121210

REACTIONS (1)
  - Oesophageal spasm [None]
